FAERS Safety Report 4868671-3 (Version None)
Quarter: 2005Q4

REPORT INFORMATION
  Report Type: 
  Country: None (occurrence: None)
  Receive Date: 20051223
  Receipt Date: 20051212
  Transmission Date: 20060501
  Serious: Yes (Other)
  Sender: FDA-Public Use
  Company Number: 2005167133

PATIENT
  Sex: Male
  Weight: 77.1115 kg

DRUGS (4)
  1. VIAGRA [Suspect]
     Indication: ERECTILE DYSFUNCTION
     Dosage: 50 MG (50 MG, AS NECESSARY)
  2. AVANDIA [Concomitant]
  3. GLUCOPHAGE [Concomitant]
  4. GLYNASE [Concomitant]

REACTIONS (3)
  - ARTHRITIS [None]
  - ARTHROPATHY [None]
  - DRUG INEFFECTIVE [None]
